FAERS Safety Report 6655491-2 (Version None)
Quarter: 2010Q1

REPORT INFORMATION
  Report Type: 
  Country: None (occurrence: None)
  Receive Date: 20100329
  Receipt Date: 20100319
  Transmission Date: 20100710
  Serious: Yes (Hospitalization, Other)
  Sender: FDA-Public Use
  Company Number: US-ASTRAZENECA-2008UW27189

PATIENT
  Age: 70 Year
  Sex: Female
  Weight: 75.3 kg

DRUGS (4)
  1. ARIMIDEX [Suspect]
     Indication: BREAST CANCER FEMALE
     Route: 048
     Dates: start: 20081101
  2. CALCIUM CITRATE W/ VITAMIN D NOS [Concomitant]
     Dosage: TWICE A DAY
  3. ASPIRIN [Concomitant]
     Indication: ANTIPLATELET THERAPY
  4. CALCIUM WITH D [Concomitant]
     Indication: PROPHYLAXIS

REACTIONS (8)
  - ARTHRALGIA [None]
  - CALCINOSIS [None]
  - DEHYDRATION [None]
  - FRACTURE [None]
  - JOINT INJURY [None]
  - JOINT SWELLING [None]
  - MUSCLE STRAIN [None]
  - OSTEOARTHRITIS [None]
